FAERS Safety Report 6255360-6 (Version None)
Quarter: 2009Q3

REPORT INFORMATION
  Report Type: 
  Country: None (occurrence: None)
  Receive Date: 20090702
  Receipt Date: 20090623
  Transmission Date: 20100115
  Serious: Yes (Other)
  Sender: FDA-Public Use
  Company Number: US-AMGEN-QUU350553

PATIENT
  Sex: Female
  Weight: 51.5 kg

DRUGS (14)
  1. NEULASTA [Suspect]
     Indication: CHEMOTHERAPY
     Route: 065
     Dates: start: 20090602
  2. IRON [Concomitant]
  3. DOXORUBICIN HCL [Concomitant]
     Dates: start: 20090601
  4. CYCLOPHOSPHAMIDE [Concomitant]
     Dates: start: 20090601
  5. APREPITANT [Concomitant]
     Dates: start: 20090601, end: 20090603
  6. FEXOFENADINE [Concomitant]
  7. LANSOPRAZOLE [Concomitant]
  8. ESCITALOPRAM [Concomitant]
  9. ALPRAZOLAM [Concomitant]
  10. RANITIDINE [Concomitant]
  11. CYCLOBENZAPRINE [Concomitant]
  12. LORAZEPAM [Concomitant]
  13. PALONOSETRON HYDROCHLORIDE [Concomitant]
     Dates: start: 20090601
  14. EX-LAX [Concomitant]

REACTIONS (3)
  - COLITIS ULCERATIVE [None]
  - CONSTIPATION [None]
  - IRON DEFICIENCY ANAEMIA [None]
